FAERS Safety Report 10103908 (Version 2)
Quarter: 2014Q2

REPORT INFORMATION
  Report Type: Other
  Country: US (occurrence: US)
  Receive Date: 20140424
  Receipt Date: 20140618
  Transmission Date: 20141212
  Serious: Yes (Other)
  Sender: FDA-Public Use
  Company Number: US-GSKPPD-2014GSK001448

PATIENT
  Sex: Female
  Weight: 89.44 kg

DRUGS (6)
  1. AVANDIA [Suspect]
     Indication: DIABETES MELLITUS
     Route: 048
     Dates: start: 2007, end: 200709
  2. ADALAT [Concomitant]
  3. MAXZIDE [Concomitant]
     Dosage: 150/100MG
  4. ASPIRIN [Concomitant]
  5. KLOR-CON [Concomitant]
  6. ZOCOR [Concomitant]

REACTIONS (1)
  - Myocardial infarction [None]
